FAERS Safety Report 15390643 (Version 1)
Quarter: 2018Q3

REPORT INFORMATION
  Report Type: Spontaneous
  Country: US (occurrence: US)
  Receive Date: 20180917
  Receipt Date: 20180917
  Transmission Date: 20181010
  Serious: Yes (Other)
  Sender: FDA-Public Use
  Company Number: US-SA-2017SA265273

PATIENT
  Age: 60 Year
  Sex: Female
  Weight: 59 kg

DRUGS (11)
  1. TAXOTERE [Suspect]
     Active Substance: DOCETAXEL
     Dosage: 133.6 MG, Q3W
     Route: 042
     Dates: start: 20140127, end: 20140127
  2. NEOSAR [Concomitant]
     Active Substance: CYCLOPHOSPHAMIDE
     Dosage: 1068 UNK
  3. LISINOPRIL. [Concomitant]
     Active Substance: LISINOPRIL
     Dosage: UNK UNK, UNK
     Dates: start: 2007
  4. BUPROPION. [Concomitant]
     Active Substance: BUPROPION
     Dosage: UNK UNK, UNK
     Dates: start: 2007
  5. METOCLOPRAMIDE. [Concomitant]
     Active Substance: METOCLOPRAMIDE
     Dosage: UNK UNK, UNK
     Dates: start: 2007
  6. INSULIN [Concomitant]
     Active Substance: INSULIN NOS
     Dosage: UNK UNK, UNK
     Dates: start: 2007
  7. NEOSAR [Concomitant]
     Active Substance: CYCLOPHOSPHAMIDE
     Dosage: 1068 MG, QCY
  8. TAXOTERE [Suspect]
     Active Substance: DOCETAXEL
     Indication: BREAST CANCER FEMALE
     Dosage: 133.6 MG, Q3W
     Route: 042
     Dates: start: 20131125, end: 20131125
  9. LITHIUM CARBONATE. [Concomitant]
     Active Substance: LITHIUM CARBONATE
     Dosage: UNK UNK, UNK
     Dates: start: 2007
  10. PRAVASTATIN. [Concomitant]
     Active Substance: PRAVASTATIN
     Dosage: UNK UNK, UNK
     Dates: start: 2007
  11. FLUOXETINE [Concomitant]
     Active Substance: FLUOXETINE HYDROCHLORIDE
     Dosage: UNK UNK, UNK
     Dates: start: 2007

REACTIONS (1)
  - Alopecia [Recovering/Resolving]

NARRATIVE: CASE EVENT DATE: 201408
